FAERS Safety Report 10072661 (Version 1)
Quarter: 2014Q2

REPORT INFORMATION
  Report Type: Spontaneous
  Country: MY (occurrence: None)
  Receive Date: 20140409
  Receipt Date: 20140409
  Transmission Date: 20141212
  Serious: Yes (Other)
  Sender: FDA-Public Use
  Company Number: MY-ALKEM-000547

PATIENT
  Age: 74 Year
  Sex: Male
  Weight: 53 kg

DRUGS (2)
  1. METFORMIN [Suspect]
     Indication: DIABETES MELLITUS
  2. GLICLAZIDE [Suspect]
     Indication: PRODUCT USED FOR UNKNOWN INDICATION

REACTIONS (8)
  - Change of bowel habit [None]
  - Weight decreased [None]
  - Anaemia vitamin B12 deficiency [None]
  - Malabsorption [None]
  - Hypoglycaemia [None]
  - Diarrhoea [None]
  - Unresponsive to stimuli [None]
  - Glycosylated haemoglobin increased [None]
